FAERS Safety Report 4526664-X (Version None)
Quarter: 2004Q4

REPORT INFORMATION
  Report Type: 
  Country: None (occurrence: None)
  Receive Date: 20041214
  Receipt Date: 20041124
  Transmission Date: 20050328
  Serious: Yes (Other)
  Sender: FDA-Public Use
  Company Number: M24749

PATIENT
  Sex: Female

DRUGS (3)
  1. ZOFRAN [Suspect]
     Route: 065
  2. PROPOFOL [Suspect]
     Route: 065
  3. DYNASTAT [Suspect]
     Indication: PREOPERATIVE CARE
     Dosage: 40MG PER DAY
     Route: 065

REACTIONS (3)
  - CONFUSIONAL STATE [None]
  - DYSTONIA [None]
  - MUSCLE RIGIDITY [None]
